FAERS Safety Report 6241646-8 (Version None)
Quarter: 2009Q2

REPORT INFORMATION
  Report Type: 
  Country: None (occurrence: None)
  Receive Date: 20090623
  Receipt Date: 20041021
  Transmission Date: 20091009
  Serious: Yes (Hospitalization)
  Sender: FDA-Public Use
  Company Number: DE-ROCHE-383894

PATIENT
  Sex: Male
  Weight: 85.3 kg

DRUGS (174)
  1. MYCOPHENOLATE MOFETIL [Suspect]
     Dosage: DRUG: MMF
     Route: 048
     Dates: start: 20040927, end: 20040927
  2. MYCOPHENOLATE MOFETIL [Suspect]
     Route: 048
     Dates: start: 20040928, end: 20040928
  3. MYCOPHENOLATE MOFETIL [Suspect]
     Route: 048
     Dates: start: 20040929, end: 20040929
  4. MYCOPHENOLATE MOFETIL [Suspect]
     Route: 048
     Dates: start: 20040929
  5. MYCOPHENOLATE MOFETIL [Suspect]
     Route: 048
     Dates: start: 20041002, end: 20041002
  6. MYCOPHENOLATE MOFETIL [Suspect]
     Route: 048
     Dates: start: 20041003, end: 20041003
  7. MYCOPHENOLATE MOFETIL [Suspect]
     Route: 048
     Dates: start: 20041003
  8. MYCOPHENOLATE MOFETIL [Suspect]
     Route: 048
     Dates: start: 20041005
  9. MYCOPHENOLATE MOFETIL [Suspect]
     Route: 048
     Dates: start: 20041007, end: 20041007
  10. MYCOPHENOLATE MOFETIL [Suspect]
     Route: 048
     Dates: start: 20041007, end: 20041007
  11. MYCOPHENOLATE MOFETIL [Suspect]
     Route: 048
     Dates: start: 20041008, end: 20041008
  12. MYCOPHENOLATE MOFETIL [Suspect]
     Route: 048
     Dates: start: 20041008, end: 20041008
  13. MYCOPHENOLATE MOFETIL [Suspect]
     Route: 048
     Dates: start: 20041009
  14. MYCOPHENOLATE MOFETIL [Suspect]
     Route: 048
     Dates: start: 20050714, end: 20050719
  15. DACLIZUMAB [Suspect]
     Route: 042
     Dates: start: 20040927, end: 20040927
  16. DACLIZUMAB [Suspect]
     Route: 042
     Dates: start: 20041011, end: 20041123
  17. SIROLIMUS [Suspect]
     Route: 048
     Dates: start: 20040927, end: 20040927
  18. SIROLIMUS [Suspect]
     Route: 048
     Dates: start: 20040928
  19. SIROLIMUS [Suspect]
     Route: 048
     Dates: start: 20041027
  20. SIROLIMUS [Suspect]
     Route: 048
     Dates: start: 20041112
  21. SIROLIMUS [Suspect]
     Route: 048
     Dates: start: 20041224, end: 20050105
  22. SIROLIMUS [Suspect]
     Route: 048
     Dates: start: 20050106
  23. SIROLIMUS [Suspect]
     Route: 048
     Dates: start: 20050115
  24. SIROLIMUS [Suspect]
     Route: 048
     Dates: start: 20050127
  25. SIROLIMUS [Suspect]
     Route: 048
     Dates: start: 20050411
  26. SIROLIMUS [Suspect]
     Route: 048
     Dates: start: 20050604
  27. SIROLIMUS [Suspect]
     Route: 048
     Dates: start: 20050715, end: 20050723
  28. SIROLIMUS [Suspect]
     Route: 048
     Dates: start: 20050728
  29. SIROLIMUS [Suspect]
     Route: 048
     Dates: start: 20050820
  30. SIROLIMUS [Suspect]
     Route: 048
     Dates: start: 20050826
  31. SIROLIMUS [Suspect]
     Route: 048
     Dates: start: 20050829
  32. PREDNISOLONE [Suspect]
     Route: 048
     Dates: start: 20040928
  33. PREDNISOLONE [Suspect]
     Route: 048
     Dates: start: 20040930, end: 20041002
  34. PREDNISOLONE [Suspect]
     Route: 048
     Dates: start: 20041003
  35. PREDNISOLONE [Suspect]
     Route: 048
     Dates: start: 20041007, end: 20041007
  36. PREDNISOLONE [Suspect]
     Route: 048
     Dates: start: 20041008
  37. PREDNISOLONE [Suspect]
     Route: 048
     Dates: start: 20041222, end: 20041222
  38. PREDNISOLONE [Suspect]
     Route: 048
     Dates: start: 20041226
  39. PREDNISOLONE [Suspect]
     Route: 048
     Dates: start: 20041231
  40. PREDNISOLONE [Suspect]
     Route: 048
     Dates: start: 20050102
  41. PREDNISOLONE [Suspect]
     Route: 048
     Dates: start: 20050217
  42. PREDNISOLONE [Suspect]
     Route: 048
     Dates: start: 20050224
  43. PREDNISOLONE [Suspect]
     Route: 048
     Dates: start: 20050510
  44. PREDNISOLONE [Suspect]
     Dosage: PREDNISOLON DOSE TAPERED BETWEEN 12.5 MG TO 30 MG RANGE.
     Route: 048
     Dates: start: 20050525
  45. PREDNISOLONE [Suspect]
     Route: 048
     Dates: start: 20050628
  46. PREDNISOLONE [Suspect]
     Route: 048
     Dates: start: 20050714
  47. PREDNISOLONE [Suspect]
     Route: 042
     Dates: start: 20040927, end: 20040927
  48. PREDNISOLONE [Suspect]
     Route: 042
     Dates: start: 20041223, end: 20041226
  49. PREDNISOLONE [Suspect]
     Route: 042
     Dates: start: 20050217, end: 20050220
  50. PREDNISOLONE [Suspect]
     Route: 042
     Dates: start: 20050411
  51. PREDNISOLONE [Suspect]
     Route: 042
     Dates: start: 20050623, end: 20050628
  52. CIPROFLOXACIN [Suspect]
     Indication: DRUG USE FOR UNKNOWN INDICATION
     Route: 048
     Dates: start: 20050119, end: 20050225
  53. CIPROFLOXACIN [Suspect]
     Route: 048
     Dates: start: 20050330, end: 20050411
  54. RAMIPRIL [Suspect]
     Indication: DRUG USE FOR UNKNOWN INDICATION
     Route: 048
     Dates: start: 20041003, end: 20041003
  55. RAMIPRIL [Suspect]
     Route: 048
     Dates: start: 20041004, end: 20041004
  56. RAMIPRIL [Suspect]
     Route: 048
     Dates: start: 20041005, end: 20041006
  57. RAMIPRIL [Suspect]
     Route: 048
     Dates: start: 20041007, end: 20050411
  58. ACETYLCYSTEINE [Concomitant]
     Route: 042
     Dates: start: 20041001, end: 20041005
  59. ACYCLOVIR [Concomitant]
     Route: 062
     Dates: start: 20050108, end: 20050114
  60. AMIODARONE HCL [Concomitant]
     Route: 048
     Dates: start: 20040930
  61. AMIODARONE HCL [Concomitant]
     Route: 048
     Dates: start: 20041003, end: 20041006
  62. AMLODIPINE [Concomitant]
     Route: 048
     Dates: start: 20040930
  63. AMLODIPINE [Concomitant]
     Route: 048
     Dates: start: 20041004, end: 20041006
  64. AMLODIPINE [Concomitant]
     Route: 048
     Dates: start: 20041007
  65. AMLODIPINE [Concomitant]
     Route: 048
     Dates: start: 20041009
  66. AMLODIPINE [Concomitant]
     Route: 048
     Dates: start: 20050724
  67. AMPHOTERICIN B [Concomitant]
     Route: 048
     Dates: start: 20040928, end: 20040928
  68. AMPHOTERICIN B [Concomitant]
     Route: 048
     Dates: start: 20040929, end: 20040929
  69. AMPHOTERICIN B [Concomitant]
     Route: 048
     Dates: start: 20040930
  70. AMPHOTERICIN B [Concomitant]
     Route: 048
     Dates: start: 20041003, end: 20041003
  71. AMPHOTERICIN B [Concomitant]
     Route: 048
     Dates: start: 20041004, end: 20041004
  72. AMPHOTERICIN B [Concomitant]
     Route: 048
     Dates: start: 20041005, end: 20041005
  73. AMPHOTERICIN B [Concomitant]
     Route: 048
     Dates: start: 20041006, end: 20041006
  74. AMPHOTERICIN B [Concomitant]
     Route: 048
     Dates: start: 20041006
  75. AMPHOTERICIN B [Concomitant]
     Route: 048
     Dates: start: 20041008, end: 20041008
  76. AMPHOTERICIN B [Concomitant]
     Route: 048
     Dates: start: 20041009
  77. ATORVASTATIN CALCIUM [Concomitant]
     Route: 048
     Dates: start: 20041113
  78. ATORVASTATIN CALCIUM [Concomitant]
     Route: 048
     Dates: start: 20050104, end: 20050406
  79. CEFUROXIME [Concomitant]
     Route: 042
     Dates: start: 20040928
  80. CEFUROXIME [Concomitant]
     Route: 042
     Dates: start: 20041001, end: 20041002
  81. CLONIDINE [Concomitant]
     Route: 048
     Dates: start: 20041006
  82. CLONIDINE [Concomitant]
     Route: 048
     Dates: start: 20041008, end: 20041008
  83. CLONIDINE [Concomitant]
     Route: 048
     Dates: start: 20041008, end: 20041008
  84. CLONIDINE [Concomitant]
     Route: 048
     Dates: start: 20041009
  85. CLONIDINE [Concomitant]
     Route: 048
     Dates: start: 20041016, end: 20050118
  86. CLONIDINE [Concomitant]
     Route: 048
     Dates: start: 20050411
  87. CLONIDINE [Concomitant]
     Route: 048
     Dates: start: 20050730
  88. DARBEPOETIN ALFA [Concomitant]
     Dosage: ROUTE: SC
     Route: 050
     Dates: start: 20050323
  89. DARBEPOETIN ALFA [Concomitant]
     Dosage: ROUTE: SC
     Route: 050
     Dates: start: 20050420
  90. DARBEPOETIN ALFA [Concomitant]
     Dosage: ROUTE: IV
     Route: 050
     Dates: start: 20050604
  91. DARBEPOETIN ALFA [Concomitant]
     Dosage: ROUTE: PV
     Route: 050
     Dates: start: 20050621
  92. DIHYDRALAZIN [Concomitant]
     Route: 042
     Dates: start: 20040930, end: 20040930
  93. DIHYDRALAZIN [Concomitant]
     Route: 042
     Dates: start: 20041001
  94. FUROSEMID [Concomitant]
     Route: 048
     Dates: start: 20040112
  95. FUROSEMID [Concomitant]
     Route: 048
     Dates: start: 20041024, end: 20041207
  96. FUROSEMID [Concomitant]
     Route: 048
     Dates: start: 20041213, end: 20041213
  97. FUROSEMID [Concomitant]
     Route: 048
     Dates: start: 20041214
  98. FUROSEMID [Concomitant]
     Route: 048
     Dates: start: 20041223, end: 20041223
  99. FUROSEMID [Concomitant]
     Route: 048
     Dates: start: 20041223, end: 20041223
  100. FUROSEMID [Concomitant]
     Route: 048
     Dates: start: 20041224
  101. FUROSEMID [Concomitant]
     Route: 048
     Dates: start: 20041226, end: 20041226
  102. FUROSEMID [Concomitant]
     Route: 048
     Dates: start: 20041226, end: 20041226
  103. FUROSEMID [Concomitant]
     Route: 048
     Dates: start: 20041227, end: 20041227
  104. FUROSEMID [Concomitant]
     Route: 048
     Dates: start: 20041228, end: 20041228
  105. FUROSEMID [Concomitant]
     Route: 048
     Dates: start: 20041228, end: 20041228
  106. FUROSEMID [Concomitant]
     Route: 048
     Dates: start: 20041229
  107. FUROSEMID [Concomitant]
     Route: 048
     Dates: start: 20050105
  108. FUROSEMID [Concomitant]
     Route: 048
     Dates: start: 20050728
  109. FUROSEMID [Concomitant]
     Route: 048
     Dates: start: 20050817
  110. KALINOR BRAUSE [Concomitant]
     Route: 048
     Dates: start: 20040102
  111. KALINOR BRAUSE [Concomitant]
     Route: 048
     Dates: start: 20041223
  112. KALINOR BRAUSE [Concomitant]
     Route: 048
     Dates: start: 20041226
  113. KALINOR BRAUSE [Concomitant]
     Route: 048
     Dates: start: 20041228
  114. KALINOR BRAUSE [Concomitant]
     Route: 048
     Dates: start: 20050103, end: 20050103
  115. KALINOR BRAUSE [Concomitant]
     Route: 048
     Dates: start: 20050104, end: 20050104
  116. KALINOR BRAUSE [Concomitant]
     Route: 048
     Dates: start: 20050105, end: 20050105
  117. KALINOR BRAUSE [Concomitant]
     Route: 048
     Dates: start: 20050106, end: 20050204
  118. LEVOFLOXACIN [Concomitant]
     Route: 042
     Dates: start: 20041001
  119. LEVOFLOXACIN [Concomitant]
     Route: 042
     Dates: start: 20041005
  120. LEVOFLOXACIN [Concomitant]
     Route: 042
     Dates: start: 20041007
  121. LEVOFLOXACIN [Concomitant]
     Route: 042
     Dates: end: 20041013
  122. LORAZEPAM [Concomitant]
     Route: 042
     Dates: start: 20040930
  123. METOPROLOL SUCCINATE [Concomitant]
     Route: 048
     Dates: start: 20040928
  124. METOPROLOL SUCCINATE [Concomitant]
     Route: 048
     Dates: start: 20041004, end: 20041004
  125. METOPROLOL SUCCINATE [Concomitant]
     Route: 048
     Dates: start: 20041005
  126. METOPROLOL SUCCINATE [Concomitant]
     Route: 048
     Dates: start: 20050128
  127. METOPROLOL SUCCINATE [Concomitant]
     Route: 048
     Dates: start: 20050812
  128. MOXONIDINE [Concomitant]
     Route: 048
     Dates: start: 20050118, end: 20050411
  129. MOXONIDINE [Concomitant]
     Route: 048
     Dates: start: 20050720
  130. MOXONIDINE [Concomitant]
     Route: 048
     Dates: start: 20050722
  131. MOXONIDINE [Concomitant]
     Route: 048
     Dates: start: 20050823, end: 20050823
  132. NEBACETIN [Concomitant]
     Route: 062
     Dates: start: 20050108, end: 20050115
  133. ROXITHROMYCIN [Concomitant]
     Route: 048
     Dates: start: 20050714, end: 20050721
  134. ROXITHROMYCIN [Concomitant]
     Route: 048
     Dates: start: 20050722, end: 20050730
  135. ROXITHROMYCIN [Concomitant]
     Route: 048
     Dates: start: 20050819
  136. SIMVASTATIN [Concomitant]
     Dosage: ROUTE: PR
     Route: 048
     Dates: start: 20050406, end: 20050617
  137. SIMVASTATIN [Concomitant]
     Route: 048
     Dates: start: 20050622
  138. SIMVASTATIN [Concomitant]
     Route: 048
     Dates: start: 20050728
  139. SIMVASTATIN [Concomitant]
     Route: 048
     Dates: start: 20050812
  140. TAZOBAC [Concomitant]
     Dosage: ROUTE: PO
     Route: 050
     Dates: start: 20050113, end: 20050128
  141. TAZOBAC [Concomitant]
     Dosage: ROUTE: IV
     Route: 050
     Dates: start: 20050715, end: 20050717
  142. URAPIDIL [Concomitant]
     Route: 042
     Dates: start: 20040928, end: 20040928
  143. URAPIDIL [Concomitant]
     Route: 042
     Dates: start: 20040928, end: 20040928
  144. URAPIDIL [Concomitant]
     Route: 042
     Dates: start: 20040929
  145. URAPIDIL [Concomitant]
     Route: 042
     Dates: start: 20041003, end: 20041003
  146. URAPIDIL [Concomitant]
     Route: 042
     Dates: start: 20041004, end: 20041004
  147. URAPIDIL [Concomitant]
     Route: 042
     Dates: start: 20041006, end: 20041006
  148. URAPIDIL [Concomitant]
     Route: 042
     Dates: start: 20041007, end: 20041008
  149. VORICONAZOL [Concomitant]
     Route: 048
     Dates: start: 20050716, end: 20050716
  150. VORICONAZOL [Concomitant]
     Route: 048
     Dates: start: 20050717, end: 20050726
  151. VORICONAZOL [Concomitant]
     Route: 048
     Dates: start: 20050811
  152. VORICONAZOL [Concomitant]
     Route: 048
     Dates: start: 20050812, end: 20050920
  153. PRIMAXIN [Concomitant]
     Dates: start: 20050719
  154. GANCICLOVIR [Concomitant]
     Route: 048
     Dates: start: 20050716
  155. ACETYLCYSTEINE [Concomitant]
     Route: 048
     Dates: start: 20041006, end: 20041016
  156. AMPHOTERICIN B [Concomitant]
     Route: 048
     Dates: start: 20050621, end: 20050629
  157. CEFUROXIME [Concomitant]
     Route: 048
     Dates: start: 20041220, end: 20041229
  158. DIHYDRALAZIN [Concomitant]
     Route: 048
     Dates: start: 20050725, end: 20050725
  159. DIHYDRALAZIN [Concomitant]
     Route: 048
     Dates: start: 20050726
  160. DIHYDRALAZIN [Concomitant]
     Route: 048
     Dates: start: 20050815
  161. FUROSEMID [Concomitant]
     Route: 042
     Dates: start: 20040901
  162. FUROSEMID [Concomitant]
     Route: 042
     Dates: start: 20040928, end: 20041002
  163. FUROSEMID [Concomitant]
     Route: 042
     Dates: start: 20041003
  164. GANCICLOVIR [Concomitant]
     Route: 048
     Dates: end: 20050720
  165. IMIPENEM [Concomitant]
     Dosage: DRUG: IMIPINEM; ROUTE: IV
     Route: 050
     Dates: start: 20050716
  166. IMIPENEM [Concomitant]
     Dosage: ROUTE: PO
     Route: 050
     Dates: end: 20050729
  167. LEVOFLOXACIN [Concomitant]
     Route: 048
     Dates: end: 20041004
  168. LEVOFLOXACIN [Concomitant]
     Route: 048
     Dates: start: 20041013
  169. LEVOFLOXACIN [Concomitant]
     Route: 048
     Dates: end: 20041016
  170. MOXIFLOXACIN HCL [Concomitant]
     Route: 048
     Dates: start: 20050811, end: 20050823
  171. TAZOBAC [Concomitant]
     Route: 048
     Dates: start: 20050715, end: 20050715
  172. URAPIDIL [Concomitant]
     Route: 048
     Dates: start: 20041005
  173. URAPIDIL [Concomitant]
     Route: 048
     Dates: start: 20041007, end: 20041007
  174. URAPIDIL [Concomitant]
     Route: 048
     Dates: start: 20041008

REACTIONS (6)
  - ANGIOEDEMA [None]
  - BLOOD CREATININE INCREASED [None]
  - DEHYDRATION [None]
  - LYMPHOCELE [None]
  - PNEUMONIA [None]
  - URINARY RETENTION [None]
